FAERS Safety Report 8486137-9 (Version None)
Quarter: 2012Q3

REPORT INFORMATION
  Report Type: 
  Country: None (occurrence: None)
  Receive Date: 20120703
  Receipt Date: 20120627
  Transmission Date: 20120928
  Serious: Yes (Hospitalization)
  Sender: FDA-Public Use
  Company Number: DE-ROCHE-1064236

PATIENT

DRUGS (2)
  1. XELODA [Suspect]
     Indication: RECTAL CANCER
  2. ELOXATIN [Suspect]
     Indication: RECTAL CANCER

REACTIONS (2)
  - DEHYDRATION [None]
  - BLOOD CREATININE INCREASED [None]
